FAERS Safety Report 14669249 (Version 2)
Quarter: 2018Q1

REPORT INFORMATION
  Report Type: Spontaneous
  Country: US (occurrence: US)
  Receive Date: 20180322
  Receipt Date: 20180322
  Transmission Date: 20180509
  Serious: Yes (Hospitalization, Other)
  Sender: FDA-Public Use
  Company Number: US-MALLINCKRODT-T201801123

PATIENT
  Sex: Male
  Weight: 75 kg

DRUGS (3)
  1. METHADOSE [Suspect]
     Active Substance: METHADONE HYDROCHLORIDE
     Indication: ANALGESIC THERAPY
     Dosage: 40 MG OR 45 MG EVERY 8 HOURS
     Route: 048
     Dates: end: 20180309
  2. VIAGRA [Concomitant]
     Active Substance: SILDENAFIL CITRATE
     Indication: PRODUCT USED FOR UNKNOWN INDICATION
  3. METHADOSE [Suspect]
     Active Substance: METHADONE HYDROCHLORIDE
     Indication: DRUG DEPENDENCE

REACTIONS (14)
  - Drug withdrawal syndrome [Unknown]
  - Muscular weakness [Unknown]
  - Anxiety [Recovering/Resolving]
  - Heart rate increased [Recovering/Resolving]
  - Therapeutic response shortened [Unknown]
  - Panic attack [Unknown]
  - Abdominal pain upper [Recovering/Resolving]
  - Weight decreased [Unknown]
  - Incorrect dose administered [Unknown]
  - Product substitution issue [Unknown]
  - Dyspnoea [Unknown]
  - Chest pain [Unknown]
  - Erectile dysfunction [Recovering/Resolving]
  - Drug intolerance [Unknown]
